FAERS Safety Report 19441369 (Version 1)
Quarter: 2021Q2

REPORT INFORMATION
  Report Type: Spontaneous
  Country: US (occurrence: US)
  Receive Date: 20210618
  Receipt Date: 20210618
  Transmission Date: 20210717
  Serious: Yes (Other)
  Sender: FDA-Public Use
  Company Number: None

PATIENT
  Age: 55 Year
  Sex: Female
  Weight: 61.69 kg

DRUGS (2)
  1. CIPROFLOXACIN. [Suspect]
     Active Substance: CIPROFLOXACIN
     Indication: URINARY TRACT INFECTION
  2. LEVOFLOXACIN. [Suspect]
     Active Substance: LEVOFLOXACIN

REACTIONS (13)
  - Fatigue [None]
  - Female sexual dysfunction [None]
  - Dysstasia [None]
  - Gastrointestinal disorder [None]
  - Limb discomfort [None]
  - Neuropathy peripheral [None]
  - Arthralgia [None]
  - Musculoskeletal stiffness [None]
  - Fall [None]
  - Gait disturbance [None]
  - Disability [None]
  - Urinary incontinence [None]
  - Balance disorder [None]

NARRATIVE: CASE EVENT DATE: 20210513
